FAERS Safety Report 10027356 (Version 1)
Quarter: 2014Q1

REPORT INFORMATION
  Report Type: Spontaneous
  Country: US (occurrence: US)
  Receive Date: 20140321
  Receipt Date: 20140321
  Transmission Date: 20141002
  Serious: Yes (Other)
  Sender: FDA-Public Use
  Company Number: US-BAYER-2014-040673

PATIENT
  Age: 22 Year
  Sex: Female

DRUGS (1)
  1. MIRENA [Suspect]
     Indication: CONTRACEPTION
     Dosage: 20 ?G/D, CONT
     Route: 015
     Dates: start: 2009, end: 201309

REACTIONS (5)
  - Genital haemorrhage [Recovering/Resolving]
  - Haemorrhagic anaemia [Recovering/Resolving]
  - Endometrial atrophy [Recovering/Resolving]
  - Infertility female [Not Recovered/Not Resolved]
  - Polymenorrhoea [None]
